FAERS Safety Report 8836570 (Version 1)
Quarter: 2012Q4

REPORT INFORMATION
  Report Type: Spontaneous
  Country: US (occurrence: None)
  Receive Date: 20121009
  Receipt Date: 20121009
  Transmission Date: 20130627
  Serious: Yes (Hospitalization)
  Sender: FDA-Public Use
  Company Number: B0835627A

PATIENT
  Age: 40 Year
  Sex: Female

DRUGS (3)
  1. LAMIVUDINE-HBV [Suspect]
  2. ZIDOVUDINE [Suspect]
  3. RALTEGRAVIR [Suspect]

REACTIONS (7)
  - Lactic acidosis [None]
  - Mental status changes [None]
  - Vomiting [None]
  - Diarrhoea [None]
  - Bronchitis chronic [None]
  - Respiratory disorder [None]
  - Continuous haemodiafiltration [None]
